FAERS Safety Report 5328950-2 (Version None)
Quarter: 2007Q2

REPORT INFORMATION
  Report Type: 
  Country: None (occurrence: None)
  Receive Date: 20070518
  Receipt Date: 20070507
  Transmission Date: 20071010
  Serious: Yes (Hospitalization)
  Sender: FDA-Public Use
  Company Number: DE-SANOFI-SYNTHELABO-A01200508373

PATIENT
  Sex: Male

DRUGS (1)
  1. ISCOVER [Suspect]
     Indication: CAROTID ARTERY STENOSIS
     Route: 048

REACTIONS (3)
  - EYE HAEMORRHAGE [None]
  - HAEMATOMA [None]
  - RETINAL HAEMORRHAGE [None]
